FAERS Safety Report 7711876-4 (Version None)
Quarter: 2011Q3

REPORT INFORMATION
  Report Type: 
  Country: None (occurrence: None)
  Receive Date: 20110826
  Receipt Date: 20110809
  Transmission Date: 20111222
  Serious: Yes (Hospitalization)
  Sender: FDA-Public Use
  Company Number: US-BAYER-201040540NA

PATIENT
  Age: 18 Year
  Sex: Female
  Weight: 100 kg

DRUGS (9)
  1. FLEXERIL [Concomitant]
     Indication: NECK PAIN
     Dosage: UNK
     Route: 048
     Dates: start: 20080507
  2. MOBIC [Concomitant]
     Indication: NECK PAIN
     Dosage: UNK
     Route: 048
     Dates: start: 20080507
  3. ULTRAM [Concomitant]
     Indication: BACK PAIN
  4. TORADOL [Concomitant]
     Dosage: UNK
     Dates: start: 20080507
  5. CITALOPRAM HYDROBROMIDE [Concomitant]
     Indication: ANXIETY
     Dosage: 40 MG, UNK
     Route: 048
     Dates: start: 20080206
  6. YASMIN [Suspect]
     Indication: CONTRACEPTION
     Dosage: UNK
     Route: 048
     Dates: start: 20080229, end: 20080523
  7. FLEXERIL [Concomitant]
     Indication: BACK PAIN
  8. ULTRAM [Concomitant]
     Indication: NECK PAIN
     Dosage: UNK
     Route: 048
     Dates: start: 20080507
  9. MOBIC [Concomitant]
     Indication: BACK PAIN

REACTIONS (4)
  - PULMONARY THROMBOSIS [None]
  - PULMONARY EMBOLISM [None]
  - DEEP VEIN THROMBOSIS [None]
  - PAIN [None]
